FAERS Safety Report 26151940 (Version 1)
Quarter: 2025Q4

REPORT INFORMATION
  Report Type: Report from Study
  Country: ZA (occurrence: ZA)
  Receive Date: 20251214
  Receipt Date: 20251214
  Transmission Date: 20260117
  Serious: Yes (Other)
  Sender: ROCHE
  Company Number: ZA-ROCHE-10000098320

PATIENT
  Sex: Male

DRUGS (3)
  1. VABYSMO [Suspect]
     Active Substance: FARICIMAB-SVOA
     Indication: Macular degeneration
     Dosage: 2ND INJ - 6 NOVEMBER 2024?3RD INJ - 8 JANUARY 2025 (9 WEEKS)
  2. VABYSMO [Suspect]
     Active Substance: FARICIMAB-SVOA
     Indication: Macular degeneration
  3. VABYSMO [Suspect]
     Active Substance: FARICIMAB-SVOA

REACTIONS (3)
  - Off label use [Unknown]
  - Optical coherence tomography abnormal [Unknown]
  - Retinal thickening [Unknown]
